FAERS Safety Report 14511480 (Version 1)
Quarter: 2018Q1

REPORT INFORMATION
  Report Type: Spontaneous
  Country: UA (occurrence: UA)
  Receive Date: 20180209
  Receipt Date: 20180209
  Transmission Date: 20180509
  Serious: Yes (Hospitalization)
  Sender: FDA-Public Use
  Company Number: UA-ASTRAZENECA-2018SE15841

PATIENT
  Age: 25543 Day
  Sex: Male

DRUGS (1)
  1. BRILINTA [Suspect]
     Active Substance: TICAGRELOR
     Indication: ACUTE CORONARY SYNDROME
     Dosage: LOADING DOSE 180 MG, THEN 90 MG TWO TIMES PER DAY
     Route: 048
     Dates: start: 20171213

REACTIONS (2)
  - Circumstance or information capable of leading to medication error [Unknown]
  - Vascular stent occlusion [Unknown]

NARRATIVE: CASE EVENT DATE: 20180116
